FAERS Safety Report 25533864 (Version 1)
Quarter: 2025Q3

REPORT INFORMATION
  Report Type: Spontaneous
  Country: US (occurrence: US)
  Receive Date: 20250709
  Receipt Date: 20250709
  Transmission Date: 20251021
  Serious: No
  Sender: ELI LILLY AND COMPANY
  Company Number: US-ELI_LILLY_AND_COMPANY-US202506024999

PATIENT
  Age: 70 Year
  Sex: Female
  Weight: 101.59 kg

DRUGS (27)
  1. MOUNJARO [Suspect]
     Active Substance: TIRZEPATIDE
     Indication: Type 2 diabetes mellitus
     Route: 065
  2. MOUNJARO [Suspect]
     Active Substance: TIRZEPATIDE
     Indication: Weight control
  3. TRULICITY [Suspect]
     Active Substance: DULAGLUTIDE
     Indication: Product used for unknown indication
     Route: 065
  4. TRULICITY [Suspect]
     Active Substance: DULAGLUTIDE
     Route: 065
  5. BRUKINSA [Suspect]
     Active Substance: ZANUBRUTINIB
     Indication: Chronic lymphocytic leukaemia
     Dosage: 160 MG, BID
     Route: 048
     Dates: start: 20210313
  6. BRUKINSA [Suspect]
     Active Substance: ZANUBRUTINIB
     Dosage: 160 MG, BID
     Route: 048
  7. BRUKINSA [Suspect]
     Active Substance: ZANUBRUTINIB
     Dosage: 160 MG, BID
     Route: 048
  8. BRUKINSA [Suspect]
     Active Substance: ZANUBRUTINIB
     Dosage: 160 MG, BID
     Route: 048
  9. BRUKINSA [Suspect]
     Active Substance: ZANUBRUTINIB
     Dosage: 160 MG, BID
     Route: 048
  10. BRUKINSA [Suspect]
     Active Substance: ZANUBRUTINIB
     Dosage: 160 MG, BID
     Route: 048
  11. ASPIRIN [Concomitant]
     Active Substance: ASPIRIN
     Indication: Product used for unknown indication
  12. FISH OIL [Concomitant]
     Active Substance: FISH OIL
     Indication: Product used for unknown indication
  13. GLIMEPIRIDE [Concomitant]
     Active Substance: GLIMEPIRIDE
     Indication: Product used for unknown indication
  14. IRON [Concomitant]
     Active Substance: IRON
     Indication: Product used for unknown indication
  15. METAMUCIL FIBER GUMMIES [Concomitant]
     Indication: Product used for unknown indication
  16. METFORMIN HYDROCHLORIDE [Concomitant]
     Active Substance: METFORMIN HYDROCHLORIDE
     Indication: Product used for unknown indication
  17. MIRTAZAPINE [Concomitant]
     Active Substance: MIRTAZAPINE
     Indication: Product used for unknown indication
  18. OMEPRAZOLE [Concomitant]
     Active Substance: OMEPRAZOLE
     Indication: Product used for unknown indication
  19. SIMVASTATIN [Concomitant]
     Active Substance: SIMVASTATIN
     Indication: Product used for unknown indication
  20. VITAMIN C [Concomitant]
     Active Substance: ASCORBIC ACID
     Indication: Product used for unknown indication
  21. VITAMIN D3 [Concomitant]
     Active Substance: CHOLECALCIFEROL
     Indication: Product used for unknown indication
  22. CALCIUM CARBONATE [Concomitant]
     Active Substance: CALCIUM CARBONATE
     Indication: Product used for unknown indication
  23. HERBALS\PLANTAGO OVATA LEAF [Concomitant]
     Active Substance: HERBALS\PLANTAGO OVATA LEAF
     Indication: Product used for unknown indication
  24. PEPTO-BISMOL [Concomitant]
     Active Substance: BISMUTH SUBSALICYLATE
     Indication: Product used for unknown indication
  25. HYDROCHLOROTHIAZIDE\VALSARTAN [Concomitant]
     Active Substance: HYDROCHLOROTHIAZIDE\VALSARTAN
     Indication: Product used for unknown indication
  26. PAROXETINE [Concomitant]
     Active Substance: PAROXETINE
     Indication: Product used for unknown indication
  27. CLINDAMYCIN [Concomitant]
     Active Substance: CLINDAMYCIN
     Indication: Product used for unknown indication

REACTIONS (10)
  - Tinnitus [Unknown]
  - Weight increased [Unknown]
  - Depressed mood [Unknown]
  - Glycosylated haemoglobin increased [Unknown]
  - Muscle spasms [Recovered/Resolved]
  - COVID-19 [Unknown]
  - Insomnia [Unknown]
  - Dyspepsia [Unknown]
  - Diarrhoea [Unknown]
  - Decreased appetite [Unknown]

NARRATIVE: CASE EVENT DATE: 20240303
